FAERS Safety Report 13033181 (Version 2)
Quarter: 2017Q1

REPORT INFORMATION
  Report Type: Spontaneous
  Country: IL (occurrence: IL)
  Receive Date: 20161215
  Receipt Date: 20170125
  Transmission Date: 20170428
  Serious: Yes (Death)
  Sender: FDA-Public Use
  Company Number: IL-BEH-2016076061

PATIENT
  Age: 82 Year
  Sex: Female

DRUGS (3)
  1. VITAMIN K [Suspect]
     Active Substance: PHYTONADIONE
     Indication: CEREBRAL HAEMORRHAGE
     Dosage: UNK
     Route: 065
     Dates: start: 20161207
  2. BERIPLEX P/N [Suspect]
     Active Substance: COAGULATION FACTOR IX HUMAN\COAGULATION FACTOR VII HUMAN\COAGULATION FACTOR X HUMAN\PROTEIN C\PROTEIN S HUMAN\PROTHROMBIN
     Indication: CEREBRAL HAEMORRHAGE
     Dosage: 1 AMPOULE
     Route: 065
     Dates: start: 20161207
  3. COUMADIN [Suspect]
     Active Substance: WARFARIN SODIUM
     Route: 065

REACTIONS (1)
  - Cerebral haemorrhage [Fatal]
